FAERS Safety Report 6509493-7 (Version None)
Quarter: 2009Q4

REPORT INFORMATION
  Report Type: 
  Country: None (occurrence: None)
  Receive Date: 20091222
  Receipt Date: 20091214
  Transmission Date: 20100525
  Serious: Yes (Hospitalization)
  Sender: FDA-Public Use
  Company Number: FR-BRISTOL-MYERS SQUIBB COMPANY-14895064

PATIENT
  Age: 78 Year
  Sex: Female

DRUGS (13)
  1. COUMADIN [Suspect]
     Indication: DEEP VEIN THROMBOSIS
     Route: 048
     Dates: start: 20090219, end: 20090224
  2. CLARITHROMYCIN [Suspect]
     Indication: HELICOBACTER GASTRITIS
     Route: 048
     Dates: start: 20090225, end: 20090301
  3. AMOXICILLINE PANFARMA [Suspect]
     Indication: HELICOBACTER GASTRITIS
     Route: 042
     Dates: start: 20090225, end: 20090304
  4. NEXIUM [Suspect]
     Indication: GASTRIC ULCER PERFORATION
     Route: 042
     Dates: start: 20090224, end: 20090327
  5. PIPERACILLIN + TAZOBACTUM [Suspect]
     Indication: ANTIBIOTIC THERAPY
     Dosage: 1 DF = 4G/500MG
     Route: 042
     Dates: start: 20090222, end: 20090224
  6. AMIKACIN [Suspect]
     Indication: ANTIBIOTIC THERAPY
     Route: 042
     Dates: start: 20090222, end: 20090224
  7. VANCOMYCIN [Suspect]
     Indication: ANTIBIOTIC THERAPY
     Route: 042
     Dates: start: 20090222, end: 20090224
  8. HEPARINE SODIQUE [Suspect]
     Indication: DEEP VEIN THROMBOSIS
     Dosage: HEPARINE SODIQUE PANPHARMA
     Route: 042
     Dates: start: 20090227, end: 20090303
  9. CALCIPARINE [Suspect]
     Indication: DEEP VEIN THROMBOSIS
     Dosage: 1 DF= 20 000 IU/0.8ML
     Route: 058
     Dates: start: 20090217, end: 20090224
  10. ARIXTRA [Concomitant]
     Dosage: 1 DF = 7.5MG/0.6ML
     Route: 058
  11. TRIATEC [Concomitant]
     Indication: HYPERTENSION
     Route: 048
  12. CARDENSIEL [Concomitant]
     Indication: CARDIAC FAILURE
     Route: 048
  13. EQUANIL [Concomitant]
     Indication: ANXIETY
     Dosage: (400MG)AN HALF INTAKE TWICE DAILY  FROM 17-FEB-2009 TO BETWEEN 22-FEB AND 03-MAR-2009
     Route: 048
     Dates: start: 20090217, end: 20090303

REACTIONS (4)
  - CYTOLYTIC HEPATITIS [None]
  - MELAENA [None]
  - RECTAL HAEMORRHAGE [None]
  - RESPIRATORY DISTRESS [None]
